FAERS Safety Report 8336943-6 (Version None)
Quarter: 2012Q2

REPORT INFORMATION
  Report Type: 
  Country: None (occurrence: None)
  Receive Date: 20120504
  Receipt Date: 20120217
  Transmission Date: 20120825
  Serious: No
  Sender: FDA-Public Use
  Company Number: US-GLAXOSMITHKLINE-A0966546A

PATIENT
  Age: 56 Year
  Sex: Male
  Weight: 65.5 kg

DRUGS (7)
  1. MIRAPEX [Concomitant]
  2. MAGNESIUM [Concomitant]
  3. AVONEX [Concomitant]
  4. VITAMIN D [Concomitant]
  5. MULTI-VITAMIN [Concomitant]
  6. GRAPESEED EXTRACT [Concomitant]
  7. HORIZANT [Suspect]
     Indication: RESTLESS LEGS SYNDROME
     Dosage: 600MG PER DAY
     Route: 048
     Dates: start: 20120129

REACTIONS (5)
  - HUNGER [None]
  - AMNESIA [None]
  - CONFUSIONAL STATE [None]
  - DIZZINESS [None]
  - SOMNOLENCE [None]
